FAERS Safety Report 9275940 (Version 1)
Quarter: 2013Q2

REPORT INFORMATION
  Report Type: Spontaneous
  Country: US (occurrence: None)
  Receive Date: 20130502
  Receipt Date: 20130502
  Transmission Date: 20140414
  Serious: Yes (Other)
  Sender: FDA-Public Use
  Company Number: None

PATIENT
  Age: 50 Year
  Sex: Female
  Weight: 62.14 kg

DRUGS (2)
  1. CYMBALTA [Suspect]
     Indication: PAIN MANAGEMENT
     Route: 048
     Dates: start: 20120903, end: 20130412
  2. METHOTREXATE [Concomitant]

REACTIONS (15)
  - Tremor [None]
  - Pain in jaw [None]
  - Suicidal ideation [None]
  - Hyperaesthesia [None]
  - Toothache [None]
  - Bruxism [None]
  - Muscle rigidity [None]
  - Anger [None]
  - Mood swings [None]
  - Abdominal pain [None]
  - Insomnia [None]
  - Tinnitus [None]
  - Vertigo [None]
  - Dizziness [None]
  - Feeling abnormal [None]
